FAERS Safety Report 21662794 (Version 1)
Quarter: 2022Q4

REPORT INFORMATION
  Report Type: Spontaneous
  Country: GB (occurrence: GB)
  Receive Date: 20221130
  Receipt Date: 20221130
  Transmission Date: 20230113
  Serious: Yes (Hospitalization, Other)
  Sender: FDA-Public Use
  Company Number: None

PATIENT
  Age: 88 Year

DRUGS (15)
  1. OMEPRAZOLE [Suspect]
     Active Substance: OMEPRAZOLE
     Indication: Product used for unknown indication
     Dosage: 20 MILLIGRAM, PRN (ONE TO BE TAKEN EACH DAY BEFORE EATING AND DRINKING, IF NEEDED)
     Route: 065
  2. AMOXICILLIN [Concomitant]
     Active Substance: AMOXICILLIN
     Dosage: 500 MILLIGRAM, TID
     Route: 065
  3. CALCIUM CARBONATE\VITAMIN D [Concomitant]
     Active Substance: CALCIUM CARBONATE\VITAMIN D
     Dosage: 1.5 GRAM,BID(COLECALCIFEROL 400UNIT/CALCIUM CARBONATE.PREFERABLY ONE TABLET EACH MORNING AND
     Route: 065
  4. DOCUSATE [Concomitant]
     Active Substance: DOCUSATE
     Indication: Constipation
     Dosage: 100 MILLIGRAM, PRNC(TAKE TWO TWICE DAILY IF NEEDED FOR CONSTIPATION.)
     Route: 065
  5. MINERAL OIL\PETROLATUM\WAX, EMULSIFYING [Concomitant]
     Active Substance: MINERAL OIL\PETROLATUM\WAX, EMULSIFYING
     Dosage: UNK UNK, PRN (APPLY 2-3 TIMES DAILY AS NEEDED)
     Route: 065
  6. LACTULOSE [Concomitant]
     Active Substance: LACTULOSE
     Indication: Constipation
     Dosage: 15 MILLILITER, PRN (TWICE A DAY AS NEEDED FOR CONSTIPATION)
     Route: 065
  7. HYDROCORTISONE ACETATE\LIDOCAINE HYDROCHLORIDE [Concomitant]
     Active Substance: HYDROCORTISONE ACETATE\LIDOCAINE HYDROCHLORIDE
     Dosage: UNK UNK, PRN ((LIDOCAINE 5% / HYDROCORTISONE ACETATE 0.275% OINTMENT))
     Route: 065
  8. ACETAMINOPHEN [Concomitant]
     Active Substance: ACETAMINOPHEN
     Dosage: 500 MILLIGRAM, PRN (TWO TO BE TAKEN EVERY 6 HOURS/FOUR TIMES A DAY IF NEEDED)
     Route: 065
  9. PREDNISOLONE [Concomitant]
     Active Substance: PREDNISOLONE
     Dosage: 5 MILLIGRAM (8 TABLETS IN THE MORNING FOR 5 DAYS)
     Route: 065
  10. ALBUTEROL [Concomitant]
     Active Substance: ALBUTEROL
     Dosage: UNK
     Route: 065
  11. POTASSIUM BICARBONATE;SODIUM ALGINATE [Concomitant]
     Dosage: SODIUM ALGINATE 500MG / POTASSIUM BICARBONATE 100MG, 1/2 TO BE CHEWED AFTER MEALS, AT BEDTIME
     Route: 065
  12. TRELEGY ELLIPTA [Concomitant]
     Active Substance: FLUTICASONE FUROATE\UMECLIDINIUM BROMIDE\VILANTEROL TRIFENATATE
     Dosage: TRELEGY ELLIPTA 92MICROGRAMS// 55MICROGRAMS/DOSE / 22MICROGRAMS/DOSE DRY POWDER INHALER.
     Route: 055
  13. WARFARIN [Concomitant]
     Active Substance: WARFARIN
     Dosage: 1 MILLIGRAM (TAKE AS PRESCRIBED IN ANTICOAGULANT TREATMENT BOOK.)
     Route: 065
  14. VENTOLIN [Concomitant]
     Active Substance: ALBUTEROL SULFATE
     Dosage: 2 DOSAGE FORM,PRN(VENTOLIN 100MICROGRAMS/DOSE EVOHALER(GLAXOSMITHKLINE UK LTD),INHALE 2 DOSES AS
     Route: 055
  15. CALCIUM\CARBOXYMETHYLCELLULOSE\DEVICE\MAGNESIUM\POTASSIUM\SODIUM CL\SO [Concomitant]
     Active Substance: CALCIUM\CARBOXYMETHYLCELLULOSE\DEVICE\MAGNESIUM\POTASSIUM\SODIUM CL\SORBITOL
     Dosage: UNK, PRN (GLANDOSANE SYNTHETIC SALIVA SPRAY NATURAL. TO BE USED WHEN REQUIRED)
     Route: 065

REACTIONS (1)
  - Osteoporosis [Unknown]
